FAERS Safety Report 9364859 (Version 4)
Quarter: 2014Q3

REPORT INFORMATION
  Report Type: Spontaneous
  Country: US (occurrence: US)
  Receive Date: 20130624
  Receipt Date: 20140718
  Transmission Date: 20150326
  Serious: Yes (Hospitalization, Disabling, Other)
  Sender: FDA-Public Use
  Company Number: US-GLAXOSMITHKLINE-A1027829A

PATIENT
  Age: 63 Year
  Sex: Male

DRUGS (9)
  1. VOTRIENT [Suspect]
     Active Substance: PAZOPANIB HYDROCHLORIDE
     Indication: OESOPHAGEAL CARCINOMA
     Dosage: 800MG PER DAY
     Route: 048
     Dates: start: 20130529
  2. PREDNISONE. [Concomitant]
     Active Substance: PREDNISONE
  3. LOSARTAN [Concomitant]
     Active Substance: LOSARTAN
  4. INSULIN [Concomitant]
     Active Substance: INSULIN NOS
  5. LANSOPRAZOLE. [Concomitant]
     Active Substance: LANSOPRAZOLE
  6. NOVASTAN [Concomitant]
     Active Substance: ARGATROBAN
  7. HYDROMORPHONE [Concomitant]
     Active Substance: HYDROMORPHONE
  8. SIMVASTATIN. [Concomitant]
     Active Substance: SIMVASTATIN
  9. ZOFRAN [Concomitant]
     Active Substance: ONDANSETRON HYDROCHLORIDE

REACTIONS (5)
  - Abdominal pain [Unknown]
  - Nausea [Unknown]
  - Chest pain [Recovering/Resolving]
  - Pneumonia [Recovering/Resolving]
  - Gastric perforation [Unknown]

NARRATIVE: CASE EVENT DATE: 2013
